FAERS Safety Report 20800564 (Version 1)
Quarter: 2022Q2

REPORT INFORMATION
  Report Type: Report from Study
  Country: US (occurrence: US)
  Receive Date: 20220509
  Receipt Date: 20220509
  Transmission Date: 20220721
  Serious: Yes (Hospitalization, Other)
  Sender: FDA-Public Use
  Company Number: US-BRISTOL-MYERS SQUIBB COMPANY-2022-029239

PATIENT
  Age: 68 Year
  Sex: Female
  Weight: 51 kg

DRUGS (23)
  1. REVLIMID [Suspect]
     Active Substance: LENALIDOMIDE
     Indication: Product used for unknown indication
     Dosage: 21 DAYS ON, 7 DAYS OFF
     Route: 048
     Dates: start: 20151007, end: 20161001
  2. REVLIMID [Suspect]
     Active Substance: LENALIDOMIDE
     Dosage: 28 DAYS
     Route: 048
     Dates: start: 20161010, end: 20170814
  3. REVLIMID [Suspect]
     Active Substance: LENALIDOMIDE
     Dosage: EVERY OTHER DAY FOR 28 DAYS
     Route: 048
     Dates: start: 20170815, end: 20180328
  4. REVLIMID [Suspect]
     Active Substance: LENALIDOMIDE
     Dosage: 21 DAYS ON, 7 DAYS OFF
     Route: 048
     Dates: start: 20181203, end: 20190807
  5. REVLIMID [Suspect]
     Active Substance: LENALIDOMIDE
     Dosage: 21 DAYS ON, 7 DAYS OFF
     Route: 048
     Dates: start: 20201202, end: 20210111
  6. POMALIDOMIDE [Suspect]
     Active Substance: POMALIDOMIDE
     Indication: Product used for unknown indication
     Dosage: DAY 1-21 OF A 28 DAY CYCLE
     Route: 048
     Dates: start: 20180409, end: 20180903
  7. DEXAMETHASONE [Suspect]
     Active Substance: DEXAMETHASONE
     Indication: Product used for unknown indication
     Dosage: DAYS 1, 8, 15, 22 OF A 28 DAYS CYCLE
     Route: 048
     Dates: start: 20141215, end: 20150401
  8. DEXAMETHASONE [Suspect]
     Active Substance: DEXAMETHASONE
     Route: 048
     Dates: start: 20180409, end: 20180903
  9. DEXAMETHASONE [Suspect]
     Active Substance: DEXAMETHASONE
     Route: 048
     Dates: start: 20181203, end: 20190807
  10. DEXAMETHASONE [Suspect]
     Active Substance: DEXAMETHASONE
     Route: 048
     Dates: start: 20201202, end: 20210111
  11. DEXAMETHASONE [Suspect]
     Active Substance: DEXAMETHASONE
     Route: 048
     Dates: start: 20210114, end: 20210128
  12. VELCADE [Suspect]
     Active Substance: BORTEZOMIB
     Indication: Product used for unknown indication
     Dosage: 1 X WEEKLY, NO REST PERIOD , DAY 1 Q 7D
     Route: 058
     Dates: start: 20141215, end: 20150401
  13. VELCADE [Suspect]
     Active Substance: BORTEZOMIB
     Dosage: 1 WEEKLY NO REST PERIOD , DAY 1 Q 7D
     Route: 058
     Dates: start: 20210114, end: 20210128
  14. ALKERAN [Suspect]
     Active Substance: MELPHALAN
     Indication: Product used for unknown indication
     Dosage: TRANSPLANT
     Route: 042
     Dates: start: 20150301, end: 20150301
  15. ALKERAN [Suspect]
     Active Substance: MELPHALAN
     Dosage: DAYS 1, 8, 15, 22 OF A 28 DAYS CYCLE
     Route: 048
     Dates: start: 20141215, end: 20150401
  16. CYTOXAN [Suspect]
     Active Substance: CYCLOPHOSPHAMIDE
     Indication: Product used for unknown indication
     Route: 042
     Dates: start: 20210114, end: 20210128
  17. CYTOXAN [Suspect]
     Active Substance: CYCLOPHOSPHAMIDE
     Dosage: DAYS 1,8,15,22 OF A 28  DAY CYCLE
     Route: 048
     Dates: start: 20141215, end: 20150401
  18. KYPROLIS [Suspect]
     Active Substance: CARFILZOMIB
     Indication: Product used for unknown indication
     Dosage: DAYS 1,2, 8, 9, 15,16
     Route: 042
     Dates: start: 20180409, end: 20180701
  19. DARZALEX [Suspect]
     Active Substance: DARATUMUMAB
     Indication: Product used for unknown indication
     Route: 042
     Dates: start: 20181203, end: 20200318
  20. DARZALEX [Suspect]
     Active Substance: DARATUMUMAB
     Route: 042
     Dates: start: 20200511, end: 20201111
  21. ALKERAN [Suspect]
     Active Substance: MELPHALAN
     Indication: Product used for unknown indication
     Route: 042
     Dates: start: 20150501, end: 20150501
  22. BLENREP [Suspect]
     Active Substance: BELANTAMAB MAFODOTIN-BLMF
     Indication: Plasma cell myeloma
     Route: 042
     Dates: start: 20210210, end: 20211228
  23. SELINEXOR [Suspect]
     Active Substance: SELINEXOR
     Indication: Product used for unknown indication
     Route: 048
     Dates: start: 20201202, end: 20210111

REACTIONS (5)
  - End stage renal disease [Not Recovered/Not Resolved]
  - Anaemia [Not Recovered/Not Resolved]
  - COVID-19 [Unknown]
  - Adenocarcinoma of colon [Not Recovered/Not Resolved]
  - Asthenia [Unknown]

NARRATIVE: CASE EVENT DATE: 20210921
